FAERS Safety Report 9014296 (Version 2)
Quarter: 2013Q1

REPORT INFORMATION
  Report Type: Spontaneous
  Country: US (occurrence: US)
  Receive Date: 20130115
  Receipt Date: 20130318
  Transmission Date: 20140127
  Serious: Yes (Hospitalization, Other)
  Sender: FDA-Public Use
  Company Number: US-PFIZER INC-2010114557

PATIENT
  Sex: Female

DRUGS (1)
  1. GEODON [Suspect]
     Dosage: UNK

REACTIONS (4)
  - Fall [Recovered/Resolved]
  - Rib fracture [Recovered/Resolved]
  - Balance disorder [Recovered/Resolved]
  - Pain [Unknown]
